FAERS Safety Report 9190610 (Version 1)
Quarter: 2013Q1

REPORT INFORMATION
  Report Type: Spontaneous
  Country: TR (occurrence: None)
  Receive Date: 20130322
  Receipt Date: 20130322
  Transmission Date: 20140127
  Serious: Yes (Other)
  Sender: FDA-Public Use
  Company Number: 2013P1003357

PATIENT
  Age: 43 Year
  Sex: Female

DRUGS (3)
  1. ISONIAZID [Suspect]
     Indication: TUBERCULOSIS
  2. ESCITALOPRAM [Suspect]
  3. CORTICOSTEROIDS [Concomitant]

REACTIONS (8)
  - Toxicity to various agents [None]
  - Pyrexia [None]
  - Confusional state [None]
  - Muscle rigidity [None]
  - Clonus [None]
  - Extensor plantar response [None]
  - Hyperexplexia [None]
  - Serotonin syndrome [None]
